FAERS Safety Report 6164489-2 (Version None)
Quarter: 2009Q2

REPORT INFORMATION
  Report Type: 
  Country: None (occurrence: None)
  Receive Date: 20090421
  Receipt Date: 20090406
  Transmission Date: 20091009
  Serious: Yes (Other)
  Sender: FDA-Public Use
  Company Number: 090407-0000578

PATIENT
  Age: 10 Year
  Sex: Female

DRUGS (4)
  1. NEMBUTAL [Suspect]
     Indication: STATUS EPILEPTICUS
     Dosage: 12 MG/KG;QH;IV
     Route: 042
  2. VALPROIC ACID [Concomitant]
  3. FOSPHENYTOIN [Concomitant]
  4. MIDAZOLAM HCL [Concomitant]

REACTIONS (9)
  - ANGIOEDEMA [None]
  - DRUG HYPERSENSITIVITY [None]
  - ENDOTRACHEAL INTUBATION COMPLICATION [None]
  - OBSTRUCTIVE AIRWAYS DISORDER [None]
  - SWOLLEN TONGUE [None]
  - TONGUE ABSCESS [None]
  - TONGUE BITING [None]
  - TONGUE HAEMATOMA [None]
  - TONGUE INJURY [None]
